FAERS Safety Report 16273967 (Version 1)
Quarter: 2019Q2

REPORT INFORMATION
  Report Type: Spontaneous
  Country: US (occurrence: US)
  Receive Date: 20190329
  Receipt Date: 20190329
  Transmission Date: 20190711
  Serious: Yes (Other)
  Sender: FDA-Public Use
  Company Number: None

PATIENT
  Age: 64 Year
  Sex: Female
  Weight: 53.07 kg

DRUGS (10)
  1. VITAMIN B COMPLEX [Concomitant]
     Active Substance: CYANOCOBALAMIN\DEXPANTHENOL\NIACINAMIDE\PYRIDOXINE HYDROCHLORIDE\RIBOFLAVIN 5^-PHOSPHATE SODIUM\THIAMINE HYDROCHLORIDE\VITAMIN B COMPLEX
  2. VITAMIN C [Concomitant]
     Active Substance: ASCORBIC ACID
  3. MEGESTROL ACETATE 20 MG [Suspect]
     Active Substance: MEGESTROL ACETATE
     Indication: UTERINE POLYP
     Dosage: ?          QUANTITY:1 DF DOSAGE FORM;OTHER FREQUENCY:1 DAILY;?
     Dates: start: 20181203, end: 20190107
  4. NIACIN. [Concomitant]
     Active Substance: NIACIN
  5. VITAMIN C [Concomitant]
     Active Substance: ASCORBIC ACID
  6. MAGNESIUM [Concomitant]
     Active Substance: MAGNESIUM
  7. RESVERADROL [Concomitant]
  8. PANTOPRAZOLE [Concomitant]
     Active Substance: PANTOPRAZOLE
  9. COQ10 [Concomitant]
     Active Substance: UBIDECARENONE
  10. MEDROXYPROGESTERONE [Suspect]
     Active Substance: MEDROXYPROGESTERONE

REACTIONS (9)
  - Rash erythematous [None]
  - Scar [None]
  - Irritability [None]
  - Blister [None]
  - Exfoliative rash [None]
  - Vaginal haemorrhage [None]
  - Rash [None]
  - Acne [None]
  - Rash pruritic [None]

NARRATIVE: CASE EVENT DATE: 20190113
